FAERS Safety Report 23798752 (Version 5)
Quarter: 2024Q2

REPORT INFORMATION
  Report Type: Report from Study
  Country: KR (occurrence: KR)
  Receive Date: 20240430
  Receipt Date: 20240603
  Transmission Date: 20240716
  Serious: Yes (Death, Other)
  Sender: FDA-Public Use
  Company Number: KR-TAKEDA-2024TUS040559

PATIENT
  Age: 47 Year
  Sex: Male
  Weight: 65 kg

DRUGS (7)
  1. BRIGATINIB [Suspect]
     Active Substance: BRIGATINIB
     Indication: Non-small cell lung cancer
     Dosage: 90 MILLIGRAM, QD
     Route: 048
     Dates: start: 20200914, end: 20200920
  2. BRIGATINIB [Suspect]
     Active Substance: BRIGATINIB
     Dosage: 180 MILLIGRAM, QD
     Route: 048
     Dates: start: 20200921, end: 20201017
  3. LASIX [Concomitant]
     Active Substance: FUROSEMIDE
     Indication: Dilated cardiomyopathy
     Dosage: 40 MILLIGRAM
     Route: 065
     Dates: start: 20200825, end: 20201017
  4. ALDACTONE [Concomitant]
     Active Substance: SPIRONOLACTONE
     Indication: Dilated cardiomyopathy
     Dosage: UNK
     Route: 065
     Dates: start: 20200825, end: 20201017
  5. CARVEDILOL [Concomitant]
     Active Substance: CARVEDILOL
     Indication: Dilated cardiomyopathy
     Dosage: 6.25 MILLIGRAM
     Route: 065
     Dates: start: 20200825, end: 20201017
  6. XARELTO [Concomitant]
     Active Substance: RIVAROXABAN
     Indication: Dilated cardiomyopathy
     Dosage: 20 MILLIGRAM
     Route: 065
     Dates: start: 20200825, end: 20201017
  7. ENTRESTO [Concomitant]
     Active Substance: SACUBITRIL\VALSARTAN
     Indication: Dilated cardiomyopathy
     Dosage: 50 MILLIGRAM
     Route: 065
     Dates: start: 20200825, end: 20201017

REACTIONS (1)
  - Cardiac tamponade [Fatal]

NARRATIVE: CASE EVENT DATE: 20201017
